FAERS Safety Report 9137695 (Version 1)
Quarter: 2013Q1

REPORT INFORMATION
  Report Type: Report from Study
  Country: US (occurrence: US)
  Receive Date: 20130304
  Receipt Date: 20130304
  Transmission Date: 20140127
  Serious: Yes (Hospitalization)
  Sender: FDA-Public Use
  Company Number: US-TEVA-358183USA

PATIENT
  Age: 59 Year
  Sex: Male

DRUGS (8)
  1. BENDAMUSTINE [Suspect]
     Indication: CHRONIC LYMPHOCYTIC LEUKAEMIA
     Dates: start: 20120626
  2. ASPIRIN [Concomitant]
     Dates: start: 2002, end: 20120722
  3. LOSARTAN [Concomitant]
     Dates: start: 2002
  4. MULTIVITAMIN [Concomitant]
  5. FISH OIL [Concomitant]
     Dates: start: 2002
  6. OMEPRAZOLE [Concomitant]
     Dates: start: 2002
  7. COMPAZINE [Concomitant]
     Dates: start: 2002
  8. VALACICLOVIR HYDROCHLORIDE [Concomitant]
     Dates: start: 20120206

REACTIONS (1)
  - Anaemia [Recovered/Resolved]
